FAERS Safety Report 12977843 (Version 3)
Quarter: 2016Q4

REPORT INFORMATION
  Report Type: Report from Study
  Country: DE (occurrence: DE)
  Receive Date: 20161128
  Receipt Date: 20161226
  Transmission Date: 20170207
  Serious: Yes (Life-Threatening, Hospitalization)
  Sender: FDA-Public Use
  Company Number: DE-ROCHE-1851982

PATIENT
  Age: 6 Year
  Sex: Male
  Weight: 27.1 kg

DRUGS (13)
  1. PREDNISOLON [Concomitant]
     Active Substance: PREDNISOLONE
     Route: 048
  2. PANTOPRAZOL [Concomitant]
     Active Substance: PANTOPRAZOLE SODIUM
     Route: 048
  3. OMEPRAZOL [Concomitant]
     Active Substance: OMEPRAZOLE
     Route: 048
  4. METHOTREXATE. [Concomitant]
     Active Substance: METHOTREXATE
     Indication: COMBINED IMMUNODEFICIENCY
     Route: 065
     Dates: start: 20160916, end: 20160916
  5. NAPROXEN. [Concomitant]
     Active Substance: NAPROXEN
     Dosage: 250 MG - 0 - 125 MG
     Route: 048
  6. RAMIPRIL. [Concomitant]
     Active Substance: RAMIPRIL
     Indication: HYPERTENSION
     Route: 048
     Dates: start: 20161110
  7. TOCILIZUMAB [Suspect]
     Active Substance: TOCILIZUMAB
     Route: 042
     Dates: start: 20161020
  8. TOCILIZUMAB [Suspect]
     Active Substance: TOCILIZUMAB
     Route: 042
     Dates: start: 20161107, end: 20161123
  9. PREDNISOLON [Concomitant]
     Active Substance: PREDNISOLONE
     Indication: COMBINED IMMUNODEFICIENCY
     Route: 048
     Dates: start: 20160801
  10. OMEPRAZOL [Concomitant]
     Active Substance: OMEPRAZOLE
     Indication: COMBINED IMMUNODEFICIENCY
     Route: 048
     Dates: start: 20160926
  11. TOCILIZUMAB [Suspect]
     Active Substance: TOCILIZUMAB
     Route: 042
     Dates: start: 20161006
  12. TOCILIZUMAB [Suspect]
     Active Substance: TOCILIZUMAB
     Indication: COMBINED IMMUNODEFICIENCY
     Dosage: 12 MG/KG
     Route: 042
     Dates: start: 20160926, end: 201610
  13. NAPROXEN. [Concomitant]
     Active Substance: NAPROXEN
     Indication: COMBINED IMMUNODEFICIENCY
     Route: 048
     Dates: start: 20161115

REACTIONS (3)
  - Cerebral haemorrhage [Unknown]
  - Gastroenteritis [Not Recovered/Not Resolved]
  - Facial paresis [Not Recovered/Not Resolved]

NARRATIVE: CASE EVENT DATE: 20161026
